FAERS Safety Report 8795913 (Version 2)
Quarter: 2012Q4

REPORT INFORMATION
  Report Type: 
  Country: VE (occurrence: VE)
  Receive Date: 20120919
  Receipt Date: 20120927
  Transmission Date: 20130627
  Serious: Yes (Death, Other)
  Sender: FDA-Public Use
  Company Number: VE-PFIZER INC-2012230883

PATIENT
  Age: 87 Year
  Sex: Male

DRUGS (1)
  1. ZOLOFT [Suspect]
     Dosage: 50 mg, 1x/day
     Route: 048

REACTIONS (2)
  - Death [Fatal]
  - Refractory cytopenia with unilineage dysplasia [Unknown]
